FAERS Safety Report 6923017-1 (Version None)
Quarter: 2010Q3

REPORT INFORMATION
  Report Type: 
  Country: None (occurrence: None)
  Receive Date: 20100813
  Receipt Date: 20100804
  Transmission Date: 20110219
  Serious: Yes (Hospitalization)
  Sender: FDA-Public Use
  Company Number: CH-PFIZER INC-2010097635

PATIENT
  Age: 73 Year
  Sex: Male

DRUGS (14)
  1. ALDACTONE [Suspect]
     Dosage: 50 MG, 1X/DAY
     Route: 048
     Dates: start: 20100621, end: 20100704
  2. TRAZODONE HCL [Suspect]
     Dosage: 50 MG, 1X/DAY
     Route: 048
     Dates: start: 20100701, end: 20100704
  3. ASPIRIN [Concomitant]
     Dosage: 50 MG, 1X/DAY
     Route: 048
  4. BECOZYM [Concomitant]
     Dosage: 3 TABLETS DAILY
     Dates: start: 20100501, end: 20100701
  5. BENERVA [Concomitant]
     Dosage: 300 MG, 1X/DAY
     Route: 048
     Dates: start: 20100501, end: 20100701
  6. METFORMIN HYDROCHLORIDE [Concomitant]
     Indication: TYPE 2 DIABETES MELLITUS
     Dosage: 1000 MG, 1X/DAY
     Route: 048
     Dates: start: 20100601
  7. REMERON [Concomitant]
     Dosage: 30 MG, 1X/DAY
     Route: 048
     Dates: start: 20100501, end: 20100630
  8. SORTIS [Concomitant]
     Indication: HYPERCHOLESTEROLAEMIA
     Dosage: 20 MG, 1X/DAY
     Route: 048
  9. ATENOLOL [Concomitant]
     Dosage: 100 MG, 1X/DAY
     Route: 048
     Dates: start: 20100609, end: 20100621
  10. ATENOLOL [Concomitant]
     Dosage: UNK
     Route: 048
     Dates: start: 20100622
  11. NOVALGIN [Concomitant]
     Dosage: 3000 MG, 1X/DAY
     Route: 048
     Dates: start: 20100501
  12. LODINE [Concomitant]
     Dosage: 300 MG, 1X/DAY
     Route: 048
     Dates: start: 20100501
  13. PANTOZOL [Concomitant]
     Dosage: 20 MG, 1X/DAY
     Route: 048
     Dates: start: 20100501
  14. CO-AMOXI [Concomitant]
     Dosage: 2000 MG, 1X/DAY
     Route: 048
     Dates: start: 20100607, end: 20100615

REACTIONS (4)
  - DERMATITIS ALLERGIC [None]
  - EOSINOPHILIA [None]
  - PRURITUS [None]
  - RASH [None]
